FAERS Safety Report 21308749 (Version 2)
Quarter: 2022Q3

REPORT INFORMATION
  Report Type: Report from Study
  Country: ZA (occurrence: ZA)
  Receive Date: 20220908
  Receipt Date: 20220909
  Transmission Date: 20221027
  Serious: Yes (Other)
  Sender: FDA-Public Use
  Company Number: ZA-NOVARTISPH-NVSC2022ZA201448

PATIENT
  Age: 6 Month
  Sex: Male
  Weight: 6.5 kg

DRUGS (4)
  1. AMPICILLIN [Suspect]
     Active Substance: AMPICILLIN
     Indication: Pneumonia
     Dosage: 315 MG
     Route: 042
     Dates: start: 20220826
  2. PENICILLIN G [Suspect]
     Active Substance: PENICILLIN G
     Indication: Pneumonia
     Dosage: 30 MG
     Route: 042
     Dates: start: 20220826
  3. AZITHROMYCIN [Concomitant]
     Active Substance: AZITHROMYCIN
     Indication: Pneumonia
     Dosage: UNK
     Route: 048
  4. GENTAMICIN [Suspect]
     Active Substance: GENTAMICIN

REACTIONS (4)
  - Pneumonia [Recovering/Resolving]
  - Bronchiolitis [Recovering/Resolving]
  - Malnutrition [Not Recovered/Not Resolved]
  - Drug eruption [Not Recovered/Not Resolved]

NARRATIVE: CASE EVENT DATE: 20220826
